FAERS Safety Report 6832768-9 (Version None)
Quarter: 2010Q3

REPORT INFORMATION
  Report Type: 
  Country: None (occurrence: None)
  Receive Date: 20100712
  Receipt Date: 20070320
  Transmission Date: 20110219
  Serious: No
  Sender: FDA-Public Use
  Company Number: US-PFIZER INC-2007024124

PATIENT
  Sex: Female
  Weight: 88.45 kg

DRUGS (3)
  1. CHANTIX [Suspect]
     Indication: SMOKING CESSATION THERAPY
     Route: 048
     Dates: start: 20070208
  2. EFFEXOR XR [Suspect]
  3. LEVOTHYROXINE [Concomitant]
     Indication: THYROID DISORDER

REACTIONS (4)
  - ABNORMAL DREAMS [None]
  - FATIGUE [None]
  - FLATULENCE [None]
  - INSOMNIA [None]
